FAERS Safety Report 19034180 (Version 1)
Quarter: 2021Q1

REPORT INFORMATION
  Report Type: Spontaneous
  Country: DE (occurrence: DE)
  Receive Date: 20210319
  Receipt Date: 20210319
  Transmission Date: 20210420
  Serious: Yes (Death, Life-Threatening, Hospitalization, Other)
  Sender: FDA-Public Use
  Company Number: DE-TEVA-2021-DE-1890924

PATIENT
  Age: 69 Year
  Sex: Male

DRUGS (11)
  1. BISOPROLOL [Suspect]
     Active Substance: BISOPROLOL
     Dosage: 5 MILLIGRAM DAILY;  0?1?0?0
  2. SIMVASTATIN. [Concomitant]
     Active Substance: SIMVASTATIN
     Dosage: 40 MILLIGRAM DAILY;  0?0?1?0
  3. DOXAZOSIN [Concomitant]
     Active Substance: DOXAZOSIN MESYLATE
     Dosage: 4 MILLIGRAM DAILY; 1?0?0?0
  4. EXFORGE HCT 10MG/320MG/25MG [Concomitant]
     Dosage: 1 DOSAGE FORMS DAILY; 10|320|25 MG, 1?0?0?0
  5. METAMIZOL [Concomitant]
     Active Substance: METAMIZOLE SODIUM
     Dosage: 500 MG, NEEDS,
  6. TORASEMID [Concomitant]
     Active Substance: TORSEMIDE
     Dosage: 10 MILLIGRAM DAILY;  1?0?0?0
  7. URAPIDIL [Concomitant]
     Active Substance: URAPIDIL
     Dosage: 90 MILLIGRAM DAILY; 1?1?1?0,
  8. ASS 100 [Concomitant]
     Active Substance: ASPIRIN
     Dosage: 100 MILLIGRAM DAILY; 1?0?0?0
  9. SITAGLIPTIN [Concomitant]
     Active Substance: SITAGLIPTIN
     Dosage: 50 MILLIGRAM DAILY; 1?0?0?0
  10. PANTOPRAZOL [Concomitant]
     Active Substance: PANTOPRAZOLE SODIUM
     Dosage: 40 MILLIGRAM DAILY; 0?0?1?0
  11. EPLERENON [Concomitant]
     Active Substance: EPLERENONE
     Dosage: 50 MG, 0.5?0?0?0

REACTIONS (3)
  - Impaired healing [Unknown]
  - Condition aggravated [Unknown]
  - Gangrene [Unknown]
